FAERS Safety Report 11623847 (Version 1)
Quarter: 2015Q4

REPORT INFORMATION
  Report Type: Spontaneous
  Country: US (occurrence: None)
  Receive Date: 20151009
  Receipt Date: 20151009
  Transmission Date: 20160304
  Serious: Yes (Hospitalization)
  Sender: FDA-Public Use
  Company Number: None

PATIENT
  Age: 12 Year
  Sex: Male
  Weight: 48.99 kg

DRUGS (1)
  1. ISONIAZID 300MG [Suspect]
     Active Substance: ISONIAZID
     Indication: TUBERCULOSIS
     Dosage: 3 PILLS
     Route: 048
     Dates: start: 20150202, end: 20150601

REACTIONS (2)
  - Hepatitis [None]
  - Liver injury [None]

NARRATIVE: CASE EVENT DATE: 20150601
